FAERS Safety Report 25704654 (Version 1)
Quarter: 2025Q3

REPORT INFORMATION
  Report Type: Spontaneous
  Country: US (occurrence: US)
  Receive Date: 20250820
  Receipt Date: 20250820
  Transmission Date: 20251021
  Serious: Yes (Other)
  Sender: NOVITIUM PHARMA
  Company Number: US-NOVITIUMPHARMA-2025USNVP02078

PATIENT
  Age: 62 Year
  Sex: Female

DRUGS (9)
  1. PREDNISONE [Suspect]
     Active Substance: PREDNISONE
     Indication: Pulmonary sarcoidosis
  2. PREDNISONE [Suspect]
     Active Substance: PREDNISONE
     Indication: Cutaneous sarcoidosis
  3. PREDNISONE [Suspect]
     Active Substance: PREDNISONE
     Indication: Sarcoidosis
  4. AZATHIOPRINE [Concomitant]
     Active Substance: AZATHIOPRINE
  5. AZATHIOPRINE [Concomitant]
     Active Substance: AZATHIOPRINE
  6. AZATHIOPRINE [Concomitant]
     Active Substance: AZATHIOPRINE
  7. ADALIMUMAB [Concomitant]
     Active Substance: ADALIMUMAB
  8. ADALIMUMAB [Concomitant]
     Active Substance: ADALIMUMAB
  9. ADALIMUMAB [Concomitant]
     Active Substance: ADALIMUMAB

REACTIONS (2)
  - Meningitis cryptococcal [Recovering/Resolving]
  - Drug ineffective [Unknown]
